FAERS Safety Report 7442916-8 (Version None)
Quarter: 2011Q2

REPORT INFORMATION
  Report Type: 
  Country: None (occurrence: None)
  Receive Date: 20110428
  Receipt Date: 20110421
  Transmission Date: 20111010
  Serious: No
  Sender: FDA-Public Use
  Company Number: US-B.I. PHARMACEUTICALS,INC./RIDGEFIELD-2011-BP-11348BP

PATIENT
  Sex: Male

DRUGS (19)
  1. LANSOPRAZOL [Concomitant]
     Indication: GASTROOESOPHAGEAL REFLUX DISEASE
  2. SIMVASTATIN [Concomitant]
     Indication: BLOOD TRIGLYCERIDES
  3. LEXAPRO [Concomitant]
     Indication: ANXIETY
  4. TRILIPIX [Concomitant]
     Indication: BLOOD TRIGLYCERIDES
  5. LEXAPRO [Concomitant]
     Indication: DEPRESSION
  6. DEPAKOTE [Concomitant]
     Indication: CONVULSION
  7. MULTI-VITAMIN [Concomitant]
     Indication: ROUTINE HEALTH MAINTENANCE
  8. VITAMIN C [Concomitant]
     Indication: ROUTINE HEALTH MAINTENANCE
  9. PRADAXA [Suspect]
     Indication: ATRIAL FIBRILLATION
     Dosage: 300 MG
     Route: 048
     Dates: start: 20110101, end: 20110315
  10. PRADAXA [Suspect]
     Dosage: 300 MG
     Route: 048
     Dates: start: 20110330
  11. ENALAPRIL [Concomitant]
     Indication: HYPERTENSION
  12. FISH OIL [Concomitant]
     Indication: PROPHYLAXIS
  13. FISH OIL [Concomitant]
     Indication: ROUTINE HEALTH MAINTENANCE
  14. METOPROLOL [Concomitant]
     Indication: ATRIAL FIBRILLATION
  15. VASOTEK [Concomitant]
  16. METOPROLOL [Concomitant]
     Indication: CEREBROVASCULAR ACCIDENT
  17. TRILIPIX [Concomitant]
     Indication: BLOOD CHOLESTEROL INCREASED
  18. SIMVASTATIN [Concomitant]
     Indication: BLOOD CHOLESTEROL INCREASED
  19. PREVACID [Concomitant]
     Indication: NAUSEA

REACTIONS (2)
  - BLOOD URINE PRESENT [None]
  - NEPHROLITHIASIS [None]
